FAERS Safety Report 8328464-1 (Version None)
Quarter: 2012Q2

REPORT INFORMATION
  Report Type: 
  Country: None (occurrence: None)
  Receive Date: 20120502
  Receipt Date: 20120502
  Transmission Date: 20120825
  Serious: Yes (Hospitalization)
  Sender: FDA-Public Use
  Company Number: None

PATIENT
  Age: 67 Year
  Sex: Female
  Weight: 94 kg

DRUGS (18)
  1. LIPITOR [Concomitant]
     Route: 048
  2. NEXIUM [Concomitant]
     Route: 048
  3. VITAMIN D [Concomitant]
     Route: 048
  4. COENZYME Q10 [Concomitant]
     Route: 048
  5. CYCLOPHOSPHAMIDE [Concomitant]
     Route: 042
  6. CITRACAL SUPPLEMENTS [Concomitant]
     Route: 048
  7. B6 [Concomitant]
  8. LASIX [Concomitant]
     Route: 048
  9. LEVOTHYROXINE SODIUM [Concomitant]
     Route: 048
  10. ZANTAC [Concomitant]
     Route: 048
  11. DOCETAXEL [Suspect]
     Indication: BREAST CANCER
     Dosage: |DOSAGETEXT: 140MG||FREQ: Q3WEEKS||ROUTE: INTRAVENOUS (NOT OTHERWISE SPECIFIED)|
     Route: 042
     Dates: start: 20120201, end: 20120404
  12. ALBUTEROL PUFFS [Concomitant]
  13. ZOFRAN [Concomitant]
  14. ATIVAN [Concomitant]
  15. VITAMIN B-12 [Concomitant]
  16. DECADRON [Concomitant]
  17. METFORMIN HCL [Concomitant]
     Route: 048
  18. COMPAZINE [Concomitant]

REACTIONS (5)
  - HIATUS HERNIA [None]
  - DYSPNOEA [None]
  - UPPER GASTROINTESTINAL HAEMORRHAGE [None]
  - COUGH [None]
  - LUNG INFILTRATION [None]
